FAERS Safety Report 6555973-8 (Version None)
Quarter: 2010Q1

REPORT INFORMATION
  Report Type: 
  Country: None (occurrence: None)
  Receive Date: 20100128
  Receipt Date: 20090121
  Transmission Date: 20100710
  Serious: No
  Sender: FDA-Public Use
  Company Number: US-TEVA-180414USA

PATIENT
  Sex: Female

DRUGS (11)
  1. COPAXONE [Suspect]
     Indication: MULTIPLE SCLEROSIS
     Route: 058
     Dates: start: 20081016
  2. SUMATRIPTAN [Concomitant]
  3. VALACYCLOVIR [Concomitant]
  4. TRAZODONE [Concomitant]
     Dosage: HS
  5. DYAZIDE [Concomitant]
  6. QUETIAPINE [Concomitant]
  7. VENLAFAXINE [Concomitant]
  8. TOPIRAMATE [Concomitant]
     Dosage: HS
  9. LEVOTHYROXINE SODIUM [Concomitant]
  10. PREGABALIN [Concomitant]
  11. MODAFINIL [Concomitant]

REACTIONS (1)
  - INJECTION SITE SWELLING [None]
